FAERS Safety Report 6088741-4 (Version None)
Quarter: 2009Q1

REPORT INFORMATION
  Report Type: 
  Country: None (occurrence: None)
  Receive Date: 20090219
  Receipt Date: 20090206
  Transmission Date: 20090719
  Serious: Yes (Other)
  Sender: FDA-Public Use
  Company Number: 2009S1002307

PATIENT
  Age: 57 Year
  Sex: Female
  Weight: 70 kg

DRUGS (2)
  1. TRAMADURA       RETARD (TRAMADOL) (100 MG) [Suspect]
     Indication: INTENTIONAL OVERDOSE
     Dosage: 5600 MG; DAILY;
  2. ALCOHOL [Concomitant]

REACTIONS (6)
  - ALCOHOL POISONING [None]
  - HYPERTENSION [None]
  - INTENTIONAL OVERDOSE [None]
  - SOMNOLENCE [None]
  - SUICIDE ATTEMPT [None]
  - TACHYCARDIA [None]
